FAERS Safety Report 5165507-0 (Version None)
Quarter: 2006Q4

REPORT INFORMATION
  Report Type: 
  Country: None (occurrence: None)
  Receive Date: 20061128
  Receipt Date: 20061117
  Transmission Date: 20070319
  Serious: Yes (Other)
  Sender: FDA-Public Use
  Company Number: 805#1#2006-00138

PATIENT
  Age: 86 Year
  Sex: Male

DRUGS (1)
  1. ALPROSTADIL [Suspect]
     Indication: ARTERIOSCLEROSIS OBLITERANS
     Dosage: 40 MCG (20 MCG 2 IN 1 DAY(S)), INTRAVENOUS DRIP
     Route: 041
     Dates: start: 20061113, end: 20061115

REACTIONS (3)
  - ANAEMIA [None]
  - CONDITION AGGRAVATED [None]
  - PLATELET COUNT DECREASED [None]
